FAERS Safety Report 21849161 (Version 2)
Quarter: 2023Q2

REPORT INFORMATION
  Report Type: Spontaneous
  Country: US (occurrence: US)
  Receive Date: 20230111
  Receipt Date: 20230410
  Transmission Date: 20230721
  Serious: No
  Sender: FDA-Public Use
  Company Number: US-PFIZER INC-PV202200077591

PATIENT
  Age: 51 Year
  Sex: Male

DRUGS (1)
  1. XELJANZ XR [Suspect]
     Active Substance: TOFACITINIB CITRATE
     Dosage: 11 MG, WEEKLY
     Dates: start: 202209

REACTIONS (5)
  - Inappropriate schedule of product administration [Unknown]
  - Rash [Recovered/Resolved]
  - Skin lesion [Recovered/Resolved]
  - Fatigue [Unknown]
  - Illness [Unknown]

NARRATIVE: CASE EVENT DATE: 20220901
